FAERS Safety Report 6663473-X (Version None)
Quarter: 2010Q1

REPORT INFORMATION
  Report Type: 
  Country: None (occurrence: None)
  Receive Date: 20100330
  Receipt Date: 20100330
  Transmission Date: 20100710
  Serious: Yes (Death)
  Sender: FDA-Public Use
  Company Number: None

PATIENT
  Age: 30 Year
  Sex: Male
  Weight: 90.7194 kg

DRUGS (2)
  1. PROPOXYPHENE HCL [Suspect]
     Indication: BACK PAIN
     Dosage: 65 MG PO
     Route: 048
     Dates: start: 20091020, end: 20091022
  2. ALCOHOL [Suspect]

REACTIONS (2)
  - ACCIDENTAL OVERDOSE [None]
  - BLOOD ALCOHOL INCREASED [None]
